FAERS Safety Report 18510236 (Version 3)
Quarter: 2021Q2

REPORT INFORMATION
  Report Type: Report from Study
  Country: None (occurrence: US)
  Receive Date: 20201117
  Receipt Date: 20210415
  Transmission Date: 20210717
  Serious: Yes (Hospitalization, Other)
  Sender: FDA-Public Use
  Company Number: US-ABBVIE-20K-163-3650486-00

PATIENT
  Age: 77 Year
  Sex: Female
  Weight: 84.9 kg

DRUGS (18)
  1. PREDNISONE. [Suspect]
     Active Substance: PREDNISONE
     Indication: RHEUMATOID ARTHRITIS
     Route: 048
     Dates: start: 1985, end: 202101
  2. HUMIRA [Suspect]
     Active Substance: ADALIMUMAB
     Indication: RHEUMATOID ARTHRITIS
     Dosage: CITRATE FREE
     Route: 058
     Dates: start: 2018, end: 202010
  3. ARTIFICIAL TEARS [Concomitant]
     Active Substance: GLYCERIN\HYPROMELLOSES\POLYETHYLENE GLYCOL 400
     Indication: DRY EYE
     Dosage: APPLY OR INSTILL 1 DROP INTO BOTH EYES THREE TIMES DAILY AS NEEDED FOR DRY EYE
  4. PLAVIX [Concomitant]
     Active Substance: CLOPIDOGREL BISULFATE
     Indication: MYOCARDIAL INFARCTION
     Route: 048
  5. PLAVIX [Concomitant]
     Active Substance: CLOPIDOGREL BISULFATE
     Indication: CORONARY ARTERIAL STENT INSERTION
  6. PREDNISONE. [Suspect]
     Active Substance: PREDNISONE
     Route: 048
     Dates: start: 202101
  7. LEXAPRO [Concomitant]
     Active Substance: ESCITALOPRAM OXALATE
     Indication: PRODUCT USED FOR UNKNOWN INDICATION
     Route: 048
  8. METFORMIN ER [Concomitant]
     Active Substance: METFORMIN HYDROCHLORIDE
     Indication: PRODUCT USED FOR UNKNOWN INDICATION
     Dosage: TAKE 500 MG BY MOUTH WITH DINNER
     Route: 048
  9. LOPRESSOR [Concomitant]
     Active Substance: METOPROLOL TARTRATE
     Indication: HYPERTENSION
     Dosage: TAKE TABLET BY MOUTH TWO TIMES DAILY
     Route: 048
  10. ZOCOR [Concomitant]
     Active Substance: SIMVASTATIN
     Indication: BLOOD CHOLESTEROL INCREASED
  11. TYLENOL [Concomitant]
     Active Substance: ACETAMINOPHEN
     Indication: PRODUCT USED FOR UNKNOWN INDICATION
     Dosage: TAKE 500 MG BY MOUTH EVERY SIX HOURS AS NEEDED
     Route: 048
  12. ASPIRIN. [Suspect]
     Active Substance: ASPIRIN
     Indication: ANTICOAGULANT THERAPY
     Route: 048
     Dates: start: 202004, end: 202010
  13. PROTONIX [Concomitant]
     Active Substance: PANTOPRAZOLE SODIUM
     Indication: GASTROOESOPHAGEAL REFLUX DISEASE
     Dosage: TAKE 1 TAB 40 MG TOTAL BY MOUTH BEFORE BREAKFAST AND SUPPER
     Route: 048
  14. ASPIRIN. [Suspect]
     Active Substance: ASPIRIN
     Indication: CORONARY ARTERIAL STENT INSERTION
  15. SUCRALFATE. [Concomitant]
     Active Substance: SUCRALFATE
     Indication: PRODUCT USED FOR UNKNOWN INDICATION
     Dosage: TAKE 1 TAB 1 G TOTAL BY MOUTH FOUR TIMES DAILY BEFORE MEALS AND AT BEDTIME
     Route: 048
  16. REFRESH [Concomitant]
     Active Substance: UNSPECIFIED INGREDIENT
     Indication: LACRIMATION DECREASED
  17. NITROFURANTOIN. [Concomitant]
     Active Substance: NITROFURANTOIN
     Indication: PRODUCT USED FOR UNKNOWN INDICATION
     Dosage: TAKE 1 CAPSULE BY MOUTH TWO TIMES DAILY
     Route: 048
  18. ZESTRIL [Concomitant]
     Active Substance: LISINOPRIL
     Indication: CARDIAC DISORDER

REACTIONS (10)
  - Diabetes mellitus [Recovering/Resolving]
  - Gait inability [Recovered/Resolved]
  - Contusion [Recovered/Resolved]
  - Inflammation [Not Recovered/Not Resolved]
  - Gastric haemorrhage [Recovered/Resolved]
  - Anaemia [Not Recovered/Not Resolved]
  - Myocardial infarction [Recovered/Resolved]
  - Peripheral swelling [Recovering/Resolving]
  - Coma [Recovered/Resolved]
  - Arthritis [Not Recovered/Not Resolved]

NARRATIVE: CASE EVENT DATE: 202004
